FAERS Safety Report 20967354 (Version 1)
Quarter: 2022Q2

REPORT INFORMATION
  Report Type: Spontaneous
  Country: PT (occurrence: PT)
  Receive Date: 20220616
  Receipt Date: 20220616
  Transmission Date: 20220720
  Serious: Yes (Hospitalization, Congenital Anomaly, Other)
  Sender: FDA-Public Use
  Company Number: PT-GlaxoSmithKline-PT2022GSK092573

PATIENT

DRUGS (3)
  1. LAMIVUDINE [Suspect]
     Active Substance: LAMIVUDINE
     Indication: Chronic hepatitis B
     Dosage: UNK
     Route: 064
  2. LAMIVUDINE [Suspect]
     Active Substance: LAMIVUDINE
     Indication: Glycogen storage disease type I
  3. TACROLIMUS [Suspect]
     Active Substance: TACROLIMUS
     Indication: Product used for unknown indication
     Dosage: UNK
     Route: 064

REACTIONS (16)
  - Foetal growth restriction [Unknown]
  - Foot deformity [Unknown]
  - Small for dates baby [Unknown]
  - Fontanelle bulging [Unknown]
  - Congenital musculoskeletal disorder of skull [Unknown]
  - Congenital musculoskeletal disorder of spine [Unknown]
  - Hypertelorism [Unknown]
  - Congenital nose malformation [Unknown]
  - Micrognathia [Unknown]
  - Ear malformation [Unknown]
  - Umbilical hernia [Unknown]
  - Congenital foot malformation [Unknown]
  - High-pitched crying [Unknown]
  - Premature baby [Unknown]
  - Atrial septal defect [Unknown]
  - Foetal exposure during pregnancy [Unknown]
